FAERS Safety Report 6808594-3 (Version None)
Quarter: 2010Q2

REPORT INFORMATION
  Report Type: 
  Country: None (occurrence: None)
  Receive Date: 20100629
  Receipt Date: 20090820
  Transmission Date: 20101027
  Serious: No
  Sender: FDA-Public Use
  Company Number: US-PFIZER INC-2009233735

PATIENT
  Age: 64 Year
  Sex: Female

DRUGS (2)
  1. XANAX XR [Suspect]
     Dosage: 0.5 MG, 2X/DAY
  2. LUVOX [Suspect]
     Dosage: 400 MG, 2X/DAY

REACTIONS (2)
  - DEPRESSION [None]
  - DRUG EFFECT DECREASED [None]
